FAERS Safety Report 4427461-6 (Version None)
Quarter: 2004Q3

REPORT INFORMATION
  Report Type: 
  Country: None (occurrence: None)
  Receive Date: 20040812
  Receipt Date: 20040809
  Transmission Date: 20050211
  Serious: Yes (Other)
  Sender: FDA-Public Use
  Company Number: THQ2004A00716

PATIENT

DRUGS (1)
  1. LANSOPRAZOLE [Suspect]

REACTIONS (1)
  - VASCULITIS [None]
